FAERS Safety Report 9320118 (Version 1)
Quarter: 2013Q2

REPORT INFORMATION
  Report Type: Report from Study
  Country: US (occurrence: US)
  Receive Date: 20130530
  Receipt Date: 20130530
  Transmission Date: 20140414
  Serious: Yes (Other)
  Sender: FDA-Public Use
  Company Number: US-BAXTER-2013BAX019684

PATIENT
  Sex: Male

DRUGS (1)
  1. [PSS GPN] AUTOPLEX T_HUMAN COAGULATION FACTOR VIII_330 U, 500 U, 600U, [Suspect]
     Indication: HAEMOPHILIA
     Route: 042
     Dates: start: 1982, end: 1988

REACTIONS (5)
  - Factor VIII inhibition [Not Recovered/Not Resolved]
  - Haemarthrosis [Recovered/Resolved]
  - Headache [Unknown]
  - Nausea [Unknown]
  - Haemarthrosis [Recovered/Resolved]
